FAERS Safety Report 5667104-7 (Version None)
Quarter: 2008Q1

REPORT INFORMATION
  Report Type: 
  Country: None (occurrence: None)
  Receive Date: 20080315
  Receipt Date: 20080124
  Transmission Date: 20080703
  Serious: No
  Sender: FDA-Public Use
  Company Number: US-ABBOTT-08P-163-0433438-00

PATIENT
  Sex: Female

DRUGS (7)
  1. HUMIRA [Suspect]
     Indication: RHEUMATOID ARTHRITIS
     Route: 058
     Dates: start: 20071101
  2. ESTRIDIOL [Concomitant]
     Indication: HYSTERECTOMY
     Route: 048
  3. CARISOPRODOL [Concomitant]
     Indication: SPINAL FUSION SURGERY
  4. TRAMADOL HCL [Concomitant]
     Indication: PAIN
  5. ESCITALOPRAM OXALATE [Concomitant]
     Indication: PAIN
  6. ESCITALOPRAM OXALATE [Concomitant]
     Indication: DEPRESSION
  7. VICODEN [Concomitant]
     Indication: PAIN

REACTIONS (3)
  - INJECTION SITE BRUISING [None]
  - INJECTION SITE ERYTHEMA [None]
  - INJECTION SITE SWELLING [None]
